FAERS Safety Report 12147124 (Version 1)
Quarter: 2016Q1

REPORT INFORMATION
  Report Type: Spontaneous
  Country: US (occurrence: US)
  Receive Date: 20160304
  Receipt Date: 20160304
  Transmission Date: 20160526
  Serious: No
  Sender: FDA-Public Use
  Company Number: US-TAKEDA-2015TUS001744

PATIENT
  Age: 70 Year
  Sex: Female
  Weight: 101.13 kg

DRUGS (5)
  1. VITAMINS                           /00067501/ [Concomitant]
     Active Substance: VITAMINS
     Indication: PRODUCT USED FOR UNKNOWN INDICATION
     Dosage: UNK
     Route: 048
  2. DEXILANT [Suspect]
     Active Substance: DEXLANSOPRAZOLE
     Indication: GASTROOESOPHAGEAL REFLUX DISEASE
     Dosage: 1 DF, QD
     Route: 048
  3. BLOOD PRESSURE MEDS [Concomitant]
     Indication: HYPERTENSION
     Dosage: UNK
     Route: 048
  4. WATER PILL [Concomitant]
     Active Substance: UNSPECIFIED INGREDIENT
     Indication: PRODUCT USED FOR UNKNOWN INDICATION
     Dosage: UNK
     Route: 048
  5. THYROID MEDICATION [Concomitant]
     Active Substance: UNSPECIFIED INGREDIENT
     Indication: THYROID DISORDER
     Dosage: UNK
     Route: 048

REACTIONS (2)
  - Dysphonia [Not Recovered/Not Resolved]
  - Extra dose administered [Not Recovered/Not Resolved]

NARRATIVE: CASE EVENT DATE: 2014
